FAERS Safety Report 13265448 (Version 1)
Quarter: 2017Q1

REPORT INFORMATION
  Report Type: Spontaneous
  Country: IN (occurrence: IN)
  Receive Date: 20170223
  Receipt Date: 20170223
  Transmission Date: 20170428
  Serious: Yes (Death, Hospitalization, Other)
  Sender: FDA-Public Use
  Company Number: IN-JNJFOC-20170221403

PATIENT

DRUGS (4)
  1. DOXORUBICIN HYDROCHLORIDE. [Suspect]
     Active Substance: DOXORUBICIN HYDROCHLORIDE
     Indication: OVARIAN EPITHELIAL CANCER
     Route: 033
  2. IFEX [Suspect]
     Active Substance: IFOSFAMIDE
     Indication: OVARIAN EPITHELIAL CANCER
     Route: 042
  3. CISPLATIN. [Suspect]
     Active Substance: CISPLATIN
     Indication: OVARIAN EPITHELIAL CANCER
     Route: 033
  4. MESNA. [Concomitant]
     Active Substance: MESNA
     Route: 065

REACTIONS (8)
  - Respiratory disorder [Fatal]
  - Off label use [Unknown]
  - Thrombocytopenia [Unknown]
  - Myocardial infarction [Unknown]
  - Arrhythmia [Unknown]
  - Renal disorder [Unknown]
  - Incorrect route of drug administration [Unknown]
  - Neutropenia [Unknown]
